FAERS Safety Report 8182228-0 (Version None)
Quarter: 2012Q1

REPORT INFORMATION
  Report Type: 
  Country: None (occurrence: None)
  Receive Date: 20120302
  Receipt Date: 20120227
  Transmission Date: 20120608
  Serious: Yes (Life-Threatening)
  Sender: FDA-Public Use
  Company Number: PHHY2012IT016497

PATIENT
  Sex: Female

DRUGS (1)
  1. AMOXICILLIN [Suspect]
     Dosage: 1 G, UNK
     Route: 048
     Dates: start: 20120213, end: 20120213

REACTIONS (6)
  - HYPOTENSION [None]
  - HYPERGLYCAEMIA [None]
  - NAUSEA [None]
  - GENERALISED ERYTHEMA [None]
  - SOPOR [None]
  - VOMITING [None]
